FAERS Safety Report 5353513-2 (Version None)
Quarter: 2007Q2

REPORT INFORMATION
  Report Type: 
  Country: None (occurrence: None)
  Receive Date: 20070612
  Receipt Date: 20070604
  Transmission Date: 20071010
  Serious: Yes (Hospitalization)
  Sender: FDA-Public Use
  Company Number: US-BAYER-200711783BCC

PATIENT
  Age: 64 Year
  Sex: Male
  Weight: 102 kg

DRUGS (5)
  1. ORIGINAL ALKA SELTZER TABLETS [Suspect]
     Indication: ISCHAEMIC HEART DISEASE PROPHYLAXIS
     Dosage: TOTAL DAILY DOSE: 325 MG  UNIT DOSE: 325 MG
     Route: 048
     Dates: end: 20070520
  2. ORIGINAL ALKA SELTZER TABLETS [Suspect]
     Dosage: TOTAL DAILY DOSE: 325 MG  UNIT DOSE: 325 MG
     Route: 048
     Dates: start: 20070601
  3. LISINOPRIL [Concomitant]
  4. PRILOSEC [Concomitant]
  5. NIACIN [Concomitant]

REACTIONS (3)
  - FEELING ABNORMAL [None]
  - HEART RATE INCREASED [None]
  - NERVOUSNESS [None]
